FAERS Safety Report 5874623-7 (Version None)
Quarter: 2008Q3

REPORT INFORMATION
  Report Type: 
  Country: None (occurrence: None)
  Receive Date: 20080902
  Receipt Date: 20080822
  Transmission Date: 20090109
  Serious: Yes (Death, Hospitalization)
  Sender: FDA-Public Use
  Company Number: 2008US002203

PATIENT
  Age: 40 Year
  Sex: Female

DRUGS (5)
  1. PROGRAF [Suspect]
     Indication: RENAL TRANSPLANT
     Dosage: 7 MG. UID/QD, ORAL
     Route: 048
     Dates: start: 20080101, end: 20080729
  2. PREDNISONE [Concomitant]
  3. MYCOPHENOLATE (MYCOPHENOLATE MOFETIL) [Concomitant]
  4. TRIMETHOPRIM + SULFAMETHOXAZOLE [Concomitant]
  5. AMLODIPINE [Concomitant]

REACTIONS (1)
  - NOCARDIA SEPSIS [None]
